FAERS Safety Report 6428978-5 (Version None)
Quarter: 2009Q4

REPORT INFORMATION
  Report Type: 
  Country: None (occurrence: None)
  Receive Date: 20091102
  Receipt Date: 20091021
  Transmission Date: 20100525
  Serious: Yes (Other)
  Sender: FDA-Public Use
  Company Number: 060001L09USA

PATIENT
  Age: 38 Year
  Sex: Female

DRUGS (3)
  1. CLOMIPHENE CITRATE [Suspect]
     Indication: INFERTILITY
  2. ESTROGEN (ESTROGEN NOS) [Concomitant]
  3. PROGESTERONE [Concomitant]

REACTIONS (3)
  - ABORTION SPONTANEOUS [None]
  - DERMATOMYOSITIS [None]
  - DRUG EXPOSURE DURING PREGNANCY [None]
